FAERS Safety Report 5916315-1 (Version None)
Quarter: 2008Q4

REPORT INFORMATION
  Report Type: 
  Country: None (occurrence: None)
  Receive Date: 20081013
  Receipt Date: 20081008
  Transmission Date: 20090506
  Serious: Yes (Death)
  Sender: FDA-Public Use
  Company Number: PHHY2008EC04679

PATIENT
  Sex: Female

DRUGS (2)
  1. TEGRETOL [Suspect]
     Indication: EPILEPSY
     Dosage: 200 MG, BID
     Route: 048
     Dates: start: 20070531, end: 20071009
  2. RIVOTRIL [Concomitant]
     Indication: AFRICAN TRYPANOSOMIASIS

REACTIONS (3)
  - CARDIAC ARREST [None]
  - CEREBRAL ATROPHY [None]
  - CONCOMITANT DISEASE PROGRESSION [None]
